FAERS Safety Report 8561003-9 (Version None)
Quarter: 2012Q3

REPORT INFORMATION
  Report Type: 
  Country: None (occurrence: None)
  Receive Date: 20120802
  Receipt Date: 20120607
  Transmission Date: 20120928
  Serious: No
  Sender: FDA-Public Use
  Company Number: US-BRISTOL-MYERS SQUIBB COMPANY-16677643

PATIENT

DRUGS (1)
  1. REYATAZ [Suspect]
     Dosage: ON THERAPY FOR MORE THAN 5 YEARS

REACTIONS (2)
  - BLOOD BILIRUBIN INCREASED [None]
  - DERMATITIS [None]
